FAERS Safety Report 8779235 (Version 1)
Quarter: 2012Q4

REPORT INFORMATION
  Report Type: 
  Country: AU (occurrence: AU)
  Receive Date: 20120912
  Receipt Date: 20120912
  Transmission Date: 20130627
  Serious: Yes (Other)
  Sender: FDA-Public Use
  Company Number: AU-009507513-2012SP030996

PATIENT

DRUGS (2)
  1. IMPLANON NXT [Suspect]
     Indication: CONTRACEPTION
     Dosage: UNK UNK, Unknown
     Dates: end: 20120511
  2. IMPLANON NXT [Suspect]
     Dosage: 1 DF, UNK
     Route: 059
     Dates: start: 20120511, end: 20120612

REACTIONS (3)
  - Skin induration [Unknown]
  - Skin depigmentation [Not Recovered/Not Resolved]
  - Tenderness [Unknown]
